FAERS Safety Report 7136034-6 (Version None)
Quarter: 2010Q4

REPORT INFORMATION
  Report Type: 
  Country: None (occurrence: None)
  Receive Date: 20101204
  Receipt Date: 20101119
  Transmission Date: 20110411
  Serious: Yes (Hospitalization)
  Sender: FDA-Public Use
  Company Number: US-BAYER-201041976NA

PATIENT

DRUGS (2)
  1. AVELOX [Suspect]
     Route: 048
     Dates: start: 20101115, end: 20101117
  2. COUMADIN [Concomitant]

REACTIONS (2)
  - OEDEMA PERIPHERAL [None]
  - URINARY RETENTION [None]
